FAERS Safety Report 12844786 (Version 2)
Quarter: 2016Q4

REPORT INFORMATION
  Report Type: Spontaneous
  Country: CA (occurrence: CA)
  Receive Date: 20161013
  Receipt Date: 20161026
  Transmission Date: 20170207
  Serious: Yes (Other)
  Sender: FDA-Public Use
  Company Number: CA-JNJFOC-20161008588

PATIENT
  Age: 67 Year
  Sex: Male

DRUGS (1)
  1. XARELTO [Suspect]
     Active Substance: RIVAROXABAN
     Indication: ORTHOPAEDIC PROCEDURE
     Route: 048

REACTIONS (5)
  - Chest pain [Unknown]
  - Vomiting [Unknown]
  - Acute coronary syndrome [Unknown]
  - Electrocardiogram change [Unknown]
  - Nausea [Unknown]

NARRATIVE: CASE EVENT DATE: 20161007
